FAERS Safety Report 11691917 (Version 4)
Quarter: 2016Q1

REPORT INFORMATION
  Report Type: Report from Study
  Country: GB (occurrence: GB)
  Receive Date: 20151103
  Receipt Date: 20160226
  Transmission Date: 20160525
  Serious: Yes (Hospitalization, Other)
  Sender: FDA-Public Use
  Company Number: GB-ROCHE-1653572

PATIENT
  Age: 81 Year
  Sex: Female

DRUGS (9)
  1. OMEPRAZOLE. [Concomitant]
     Active Substance: OMEPRAZOLE
     Route: 042
     Dates: start: 20151019
  2. CALCIUM CARBONATE. [Concomitant]
     Active Substance: CALCIUM CARBONATE
     Route: 065
     Dates: start: 20141030
  3. SALBUTAMOL SULFATE [Concomitant]
     Active Substance: ALBUTEROL SULFATE
     Route: 065
     Dates: start: 201101
  4. IPRATROPIUM BROMIDE. [Concomitant]
     Active Substance: IPRATROPIUM BROMIDE
     Route: 065
     Dates: start: 201101
  5. RANIBIZUMAB [Suspect]
     Active Substance: RANIBIZUMAB
     Indication: NEOVASCULAR AGE-RELATED MACULAR DEGENERATION
     Dosage: MOST RECENT DOSE PRIOR TO SAE 05/OCT/2015
     Route: 065
     Dates: start: 20120607
  6. OMEPRAZOLE. [Concomitant]
     Active Substance: OMEPRAZOLE
     Route: 042
     Dates: start: 20151022
  7. OMEPRAZOLE. [Concomitant]
     Active Substance: OMEPRAZOLE
     Route: 048
  8. INDACATEROL [Concomitant]
     Active Substance: INDACATEROL
     Route: 065
     Dates: start: 20120105
  9. OMEPRAZOLE. [Concomitant]
     Active Substance: OMEPRAZOLE
     Route: 065
     Dates: start: 199707

REACTIONS (3)
  - Duodenal ulcer [Recovering/Resolving]
  - Helicobacter infection [Recovering/Resolving]
  - Upper gastrointestinal haemorrhage [Recovered/Resolved]

NARRATIVE: CASE EVENT DATE: 20151019
